FAERS Safety Report 18702557 (Version 2)
Quarter: 2021Q1

REPORT INFORMATION
  Report Type: Spontaneous
  Country: IT (occurrence: IT)
  Receive Date: 20210105
  Receipt Date: 20210323
  Transmission Date: 20210419
  Serious: Yes (Other)
  Sender: FDA-Public Use
  Company Number: IT-TAKEDA-2021TUS000210

PATIENT
  Age: 7 Year
  Sex: Male
  Weight: 37 kg

DRUGS (1)
  1. RECOMBINATE [Suspect]
     Active Substance: ANTIHEMOPHILIC FACTOR, HUMAN RECOMBINANT
     Indication: FACTOR VIII DEFICIENCY
     Dosage: 1000 INTERNATIONAL UNIT, BID
     Route: 042
     Dates: start: 20191007

REACTIONS (1)
  - Periorbital haematoma [Recovering/Resolving]

NARRATIVE: CASE EVENT DATE: 20201109
